FAERS Safety Report 9177445 (Version 1)
Quarter: 2013Q1

REPORT INFORMATION
  Report Type: Spontaneous
  Country: US (occurrence: US)
  Receive Date: 20130321
  Receipt Date: 20130321
  Transmission Date: 20140127
  Serious: No
  Sender: FDA-Public Use
  Company Number: US-MYLANLABS-2012S1015611

PATIENT
  Age: 83 Year
  Sex: Female

DRUGS (5)
  1. ALBUTEROL SULFATE [Suspect]
     Indication: CHRONIC OBSTRUCTIVE PULMONARY DISEASE
     Route: 055
     Dates: start: 201207, end: 201207
  2. BUDESONIDE [Suspect]
     Indication: CHRONIC OBSTRUCTIVE PULMONARY DISEASE
  3. CARBIDOPA [Concomitant]
     Route: 048
  4. SERTRALINE [Concomitant]
     Route: 048
  5. COUMADIN [Concomitant]
     Route: 048

REACTIONS (1)
  - Tremor [Recovered/Resolved]
